FAERS Safety Report 7306621-0 (Version None)
Quarter: 2011Q1

REPORT INFORMATION
  Report Type: 
  Country: None (occurrence: None)
  Receive Date: 20110222
  Receipt Date: 20110217
  Transmission Date: 20110831
  Serious: Yes (Other)
  Sender: FDA-Public Use
  Company Number: US-PFIZER INC-2011035646

PATIENT
  Sex: Female

DRUGS (1)
  1. LIPITOR [Suspect]
     Dosage: UNK

REACTIONS (5)
  - RENAL IMPAIRMENT [None]
  - CATHETERISATION CARDIAC [None]
  - BLOOD UREA INCREASED [None]
  - MYELODYSPLASTIC SYNDROME [None]
  - DUODENAL ULCER HAEMORRHAGE [None]
